FAERS Safety Report 16897182 (Version 2)
Quarter: 2019Q4

REPORT INFORMATION
  Report Type: Other
  Country: FR (occurrence: FR)
  Receive Date: 20191009
  Receipt Date: 20191015
  Transmission Date: 20200122
  Serious: Yes (Death, Hospitalization)
  Sender: FDA-Public Use
  Company Number: FR-CELLTRION INC.-2019FR025365

PATIENT

DRUGS (15)
  1. DOCETAXEL. [Suspect]
     Active Substance: DOCETAXEL
     Indication: NON-SMALL CELL LUNG CANCER
     Dosage: UNK
  2. PERTUZUMAB. [Suspect]
     Active Substance: PERTUZUMAB
     Indication: NON-SMALL CELL LUNG CANCER
     Dosage: 840 MG EVERY 2 MONTHS (STRENGTH: 30 MG/ML)
     Route: 042
     Dates: start: 20190902, end: 20190902
  3. METOCLOPRAMIDE. [Concomitant]
     Active Substance: METOCLOPRAMIDE
     Dosage: 10 MG
     Route: 065
  4. APREPITANT. [Concomitant]
     Active Substance: APREPITANT
     Dosage: 80 MG
     Route: 065
  5. DUPHALAC [Concomitant]
     Active Substance: LACTULOSE
     Dosage: 10 G
     Route: 065
  6. SALBUTAMOL [Concomitant]
     Active Substance: ALBUTEROL
     Dosage: UNK
  7. GRANULOCYTE COLONY STIMULATING FACTOR [Concomitant]
     Active Substance: GRANULOCYTE COLONY-STIMULATING FACTOR NOS
  8. LANSOYL [Concomitant]
     Active Substance: MINERAL OIL
  9. DOCETAXEL. [Suspect]
     Active Substance: DOCETAXEL
     Indication: LUNG NEOPLASM MALIGNANT
     Dosage: 75 MG/M2 EVERY 2 MONTHS
     Route: 042
     Dates: start: 20190903, end: 20190903
  10. ZARZIO [Concomitant]
     Active Substance: FILGRASTIM
     Dosage: 30 MEGA-INTERNATIONAL UNIT
     Route: 065
  11. TRASTUZUMAB (UNKNOWN) [Suspect]
     Active Substance: TRASTUZUMAB
     Indication: NON-SMALL CELL LUNG CANCER
     Dosage: 8 MG/KG EVERY 2 MONTHS
     Route: 041
     Dates: start: 20190903, end: 20190903
  12. NIVOLUMAB [Suspect]
     Active Substance: NIVOLUMAB
     Indication: NON-SMALL CELL LUNG CANCER
     Dosage: UNK
     Route: 065
  13. MORPHINE [Concomitant]
     Active Substance: MORPHINE
     Dosage: UNK
  14. VALACICLOVIR [Concomitant]
     Active Substance: VALACYCLOVIR HYDROCHLORIDE
     Dosage: UNK
  15. PREDNISOLONE. [Concomitant]
     Active Substance: PREDNISOLONE
     Dosage: 20 MG
     Route: 065

REACTIONS (3)
  - Sudden death [Fatal]
  - Product use in unapproved indication [Unknown]
  - Acute kidney injury [Fatal]

NARRATIVE: CASE EVENT DATE: 20190912
